FAERS Safety Report 14849222 (Version 1)
Quarter: 2018Q2

REPORT INFORMATION
  Report Type: Spontaneous
  Country: IE (occurrence: IE)
  Receive Date: 20180504
  Receipt Date: 20180504
  Transmission Date: 20180711
  Serious: Yes (Hospitalization)
  Sender: FDA-Public Use
  Company Number: IE-MYLANLABS-2018M1029618

PATIENT
  Age: 40 Year
  Sex: Female

DRUGS (9)
  1. LEVETIRACETAM. [Suspect]
     Active Substance: LEVETIRACETAM
     Indication: EPILEPSY
  2. VALPROIC ACID. [Suspect]
     Active Substance: VALPROIC ACID
     Indication: EPILEPSY
  3. CIDOFOVIR. [Concomitant]
     Active Substance: CIDOFOVIR
     Indication: IMMUNE RECONSTITUTION INFLAMMATORY SYNDROME
     Dosage: UNK, (TWO COURSES)
     Route: 042
  4. LEVETIRACETAM. [Suspect]
     Active Substance: LEVETIRACETAM
     Indication: PARTIAL SEIZURES
     Dosage: 1500 MG, BID
  5. VALPROIC ACID. [Suspect]
     Active Substance: VALPROIC ACID
     Indication: PARTIAL SEIZURES
     Dosage: 200 MG, QD (DAILY)
  6. LACOSAMIDE. [Suspect]
     Active Substance: LACOSAMIDE
     Indication: PARTIAL SEIZURES
     Dosage: 200 MG, BID (2X/DAY)
  7. METHYLPREDNISOLONE. [Concomitant]
     Active Substance: METHYLPREDNISOLONE
     Indication: RELAPSING-REMITTING MULTIPLE SCLEROSIS
     Dosage: UNK
     Route: 042
  8. MIRTAZAPINE. [Concomitant]
     Active Substance: MIRTAZAPINE
     Indication: IMMUNE RECONSTITUTION INFLAMMATORY SYNDROME
     Dosage: 45 MG, QD (DAILY)
  9. METHYLPREDNISOLONE. [Concomitant]
     Active Substance: METHYLPREDNISOLONE
     Indication: IMMUNE RECONSTITUTION INFLAMMATORY SYNDROME

REACTIONS (2)
  - Drug ineffective [Recovering/Resolving]
  - No adverse event [Unknown]
